FAERS Safety Report 18052525 (Version 1)
Quarter: 2020Q3

REPORT INFORMATION
  Report Type: Spontaneous
  Country: IT (occurrence: IT)
  Receive Date: 20200722
  Receipt Date: 20200722
  Transmission Date: 20201103
  Serious: Yes (Other)
  Sender: FDA-Public Use
  Company Number: IT-AUROBINDO-AUR-APL-2020-035740

PATIENT
  Sex: Male

DRUGS (2)
  1. PARACETAMOL [Suspect]
     Active Substance: ACETAMINOPHEN
     Indication: ARTHRALGIA
     Dosage: UNK
     Route: 065
  2. HERBAL EXTRACT NOS [Suspect]
     Active Substance: HERBALS
     Indication: ARTHRALGIA

REACTIONS (4)
  - Malaise [Unknown]
  - Abdominal pain [Unknown]
  - Hepatic failure [Unknown]
  - Nausea [Unknown]
